FAERS Safety Report 19682100 (Version 1)
Quarter: 2021Q3

REPORT INFORMATION
  Report Type: Spontaneous
  Country: FR (occurrence: FR)
  Receive Date: 20210810
  Receipt Date: 20210810
  Transmission Date: 20211014
  Serious: Yes (Other)
  Sender: FDA-Public Use
  Company Number: FR-MYLANLABS-2021M1048879

PATIENT
  Age: 53 Year
  Sex: Female

DRUGS (14)
  1. DEXAMETHASONE. [Suspect]
     Active Substance: DEXAMETHASONE
     Indication: BONE LESION
     Dosage: 40 MILLIGRAM, Q21D
     Route: 048
  2. PLERIXAFOR [Suspect]
     Active Substance: PLERIXAFOR
     Indication: PLASMA CELL MYELOMA
     Dosage: 16 MILLIGRAM
     Route: 065
  3. FILGRASTIM [Suspect]
     Active Substance: FILGRASTIM
     Indication: PLASMA CELL MYELOMA
     Dosage: 10 MICROGRAM/KILOGRAM (DURING 7 DAYS)
     Route: 065
  4. VELCADE [Suspect]
     Active Substance: BORTEZOMIB
     Indication: BONE LESION
     Dosage: 1.3 MILLIGRAM/SQ. METER, QW
     Route: 058
  5. FILGRASTIM [Suspect]
     Active Substance: FILGRASTIM
     Indication: BONE LESION
     Dosage: UNK
  6. MELPHALAN. [Suspect]
     Active Substance: MELPHALAN
     Indication: BONE LESION
     Dosage: UNK
  7. CYCLOPHOSPHAMIDE. [Suspect]
     Active Substance: CYCLOPHOSPHAMIDE
     Indication: BONE LESION
     Dosage: UNK
  8. THALIDOMIDE [Suspect]
     Active Substance: THALIDOMIDE
     Indication: BONE LESION
     Dosage: UNK
  9. THALIDOMIDE [Suspect]
     Active Substance: THALIDOMIDE
     Indication: PLASMA CELL MYELOMA
     Dosage: 100 MILLIGRAM, QD
     Route: 065
  10. PLERIXAFOR [Suspect]
     Active Substance: PLERIXAFOR
     Indication: BONE LESION
     Dosage: UNK
  11. CYCLOPHOSPHAMIDE. [Suspect]
     Active Substance: CYCLOPHOSPHAMIDE
     Indication: PLASMA CELL MYELOMA
     Dosage: 300 MILLIGRAM/SQ. METER, QW
     Route: 065
  12. DEXAMETHASONE. [Suspect]
     Active Substance: DEXAMETHASONE
     Indication: PLASMA CELL MYELOMA
     Dosage: UNK
     Route: 065
  13. VELCADE [Suspect]
     Active Substance: BORTEZOMIB
     Indication: PLASMA CELL MYELOMA
     Dosage: UNK
  14. MELPHALAN. [Suspect]
     Active Substance: MELPHALAN
     Indication: PLASMA CELL MYELOMA
     Dosage: 200 MILLIGRAM/SQ. METER
     Route: 065

REACTIONS (3)
  - Myelodysplastic syndrome [Recovering/Resolving]
  - Hepatitis [Unknown]
  - Vanishing bile duct syndrome [Unknown]
